FAERS Safety Report 19249889 (Version 2)
Quarter: 2022Q2

REPORT INFORMATION
  Report Type: Spontaneous
  Country: US (occurrence: US)
  Receive Date: 20210512
  Receipt Date: 20220511
  Transmission Date: 20220721
  Serious: No
  Sender: FDA-Public Use
  Company Number: US-UCBSA-2020052343

PATIENT
  Sex: Female
  Weight: 83.265 kg

DRUGS (1)
  1. CIMZIA [Suspect]
     Active Substance: CERTOLIZUMAB PEGOL
     Indication: Crohn^s disease
     Dosage: 400 MILLIGRAM, MONTHLY (QM)
     Route: 058
     Dates: end: 202010

REACTIONS (5)
  - Illness [Unknown]
  - Insurance issue [Unknown]
  - Joint swelling [Unknown]
  - Arthralgia [Unknown]
  - Therapy interrupted [Unknown]
